FAERS Safety Report 11686541 (Version 3)
Quarter: 2016Q1

REPORT INFORMATION
  Report Type: Spontaneous
  Country: US (occurrence: US)
  Receive Date: 20151030
  Receipt Date: 20160119
  Transmission Date: 20160525
  Serious: Yes (Hospitalization, Other)
  Sender: FDA-Public Use
  Company Number: US-SMITH AND NEPHEW, INC-2015SMT00433

PATIENT
  Sex: Male

DRUGS (1)
  1. REGRANEX [Suspect]
     Active Substance: BECAPLERMIN
     Indication: FOOT DEFORMITY
     Dosage: UNK, 1X/DAY
     Route: 061
     Dates: start: 201510, end: 2015

REACTIONS (5)
  - Toe amputation [Recovered/Resolved with Sequelae]
  - Osteomyelitis [Unknown]
  - Surgery [Unknown]
  - Off label use [Unknown]
  - Soft tissue flap operation [Recovered/Resolved with Sequelae]

NARRATIVE: CASE EVENT DATE: 2015
